FAERS Safety Report 9361340 (Version 1)
Quarter: 2013Q2

REPORT INFORMATION
  Report Type: Spontaneous
  Country: AU (occurrence: AU)
  Receive Date: 20130621
  Receipt Date: 20130621
  Transmission Date: 20140414
  Serious: Yes (Death, Hospitalization)
  Sender: FDA-Public Use
  Company Number: AU-PFIZER INC-2013154496

PATIENT
  Age: 65 Year
  Sex: Male
  Weight: 79 kg

DRUGS (7)
  1. SUTENT [Suspect]
     Indication: METASTATIC RENAL CELL CARCINOMA
     Dosage: 50 MG, 1X/DAY, 4 WEEKS ON, 2 WEEKS OFF
     Route: 048
     Dates: start: 20130325, end: 20130421
  2. ASPIRIN [Concomitant]
     Indication: CARDIAC DISORDER
     Dosage: 100 MG, 1X/DAY
     Route: 048
  3. PLAVIX [Concomitant]
     Indication: CARDIAC DISORDER
     Dosage: 75 MG, 1X/DAY
     Route: 048
  4. KARVEA [Concomitant]
     Dosage: 150 MG, 1X/DAY
  5. DIABEX [Concomitant]
     Dosage: 500 MG, 2X/DAY
  6. LIPITOR [Concomitant]
     Dosage: 145 MG, 1X/DAY
  7. CRESTOR [Concomitant]
     Dosage: 40 MG, 1X/DAY

REACTIONS (3)
  - Disease progression [Fatal]
  - Metastatic renal cell carcinoma [Fatal]
  - Interstitial lung disease [Recovering/Resolving]
